FAERS Safety Report 13781060 (Version 1)
Quarter: 2017Q3

REPORT INFORMATION
  Report Type: Spontaneous
  Country: US (occurrence: US)
  Receive Date: 20170724
  Receipt Date: 20170724
  Transmission Date: 20171127
  Serious: No
  Sender: FDA-Public Use
  Company Number: US-009507513-1707USA006308

PATIENT
  Age: 25 Year
  Sex: Female
  Weight: 81.63 kg

DRUGS (1)
  1. NUVARING [Suspect]
     Active Substance: ETHINYL ESTRADIOL\ETONOGESTREL
     Dosage: 1 RING, 3 WEEKS INSIDE THEN 1 WEEK OUT
     Route: 067
     Dates: start: 20170706, end: 20170708

REACTIONS (2)
  - Incorrect drug administration duration [Unknown]
  - Medication residue present [Unknown]

NARRATIVE: CASE EVENT DATE: 20170708
